FAERS Safety Report 19190235 (Version 2)
Quarter: 2021Q2

REPORT INFORMATION
  Report Type: Spontaneous
  Country: US (occurrence: US)
  Receive Date: 20210428
  Receipt Date: 20210618
  Transmission Date: 20210717
  Serious: No
  Sender: FDA-Public Use
  Company Number: US-PFIZER INC-2021364437

PATIENT
  Age: 71 Year
  Sex: Male

DRUGS (2)
  1. GENOTROPIN [Suspect]
     Active Substance: SOMATROPIN
     Dosage: 0.6 MG, ALTERNATE DAY (0.6 MG AND 0.8 MG ON ALTERNATE DAYS)
  2. GENOTROPIN [Suspect]
     Active Substance: SOMATROPIN
     Dosage: 0.8 MG, ALTERNATE DAY (0.6 MG AND 0.8 MG ON ALTERNATE DAYS)

REACTIONS (2)
  - Device occlusion [Unknown]
  - Drug dose omission by device [Unknown]
